FAERS Safety Report 5988713-1 (Version None)
Quarter: 2008Q4

REPORT INFORMATION
  Report Type: 
  Country: None (occurrence: None)
  Receive Date: 20081210
  Receipt Date: 20081201
  Transmission Date: 20090506
  Serious: Yes (Other)
  Sender: FDA-Public Use
  Company Number: PHEH2008US08729

PATIENT
  Sex: Female

DRUGS (18)
  1. RECLAST [Suspect]
     Indication: OSTEOPOROSIS
     Dosage: 5 MG, YEARLY
     Route: 042
     Dates: start: 20080813
  2. CALCIUM WITH VITAMIN D [Concomitant]
     Dosage: 1200 MG, QD
  3. TUMS [Concomitant]
  4. LORCET-HD [Concomitant]
     Dosage: 10/600, TID
  5. FENTANYL-100 [Concomitant]
     Dosage: 100 MCG/H
     Route: 062
  6. COUMADIN [Concomitant]
     Dosage: 4 MG, QD
  7. ADDERALL 10 [Concomitant]
     Dosage: 2.5 MG, BID
  8. ZONEGRAN [Concomitant]
     Dosage: 100 MG, BID
  9. SINEMET [Concomitant]
     Dosage: 25-100, TWO EACH, QD
  10. OMEPRAZOLE [Concomitant]
     Dosage: 20 MG, QD
  11. ELAVIL [Concomitant]
     Dosage: 50 MG, QD
  12. SALAGEN [Concomitant]
     Dosage: 5 MG, TID
  13. PROMETHAZINE [Concomitant]
     Dosage: 25 MG, Q6H PRN
  14. LASIX [Concomitant]
     Dosage: 20 MG, BID PRN
  15. POTASSIUM CHLORIDE [Concomitant]
     Dosage: 20 MEQ, QD PRN
  16. MULTI-VITAMINS [Concomitant]
     Dosage: UNK
  17. COQ10 [Concomitant]
     Dosage: 100 MG, QD
  18. TEA, GREEN [Concomitant]
     Dosage: 500 MG, QD

REACTIONS (4)
  - BLOOD ALKALINE PHOSPHATASE INCREASED [None]
  - BONE PAIN [None]
  - GINGIVAL RECESSION [None]
  - TOOTH RESORPTION [None]
